FAERS Safety Report 22175225 (Version 1)
Quarter: 2023Q2

REPORT INFORMATION
  Report Type: Other
  Country: GB (occurrence: GB)
  Receive Date: 20230405
  Receipt Date: 20230405
  Transmission Date: 20230722
  Serious: Yes (Other)
  Sender: FDA-Public Use
  Company Number: GB-MACLEODS PHARMA EU LTD-MAC2023040604

PATIENT

DRUGS (2)
  1. ARIPIPRAZOLE [Suspect]
     Active Substance: ARIPIPRAZOLE
     Indication: Product used for unknown indication
     Dosage: 2.5 MILLIGRAM, QD (TAKE HALF A TABLET (2.5MG) EACH MORNING)
     Route: 065
     Dates: start: 20230306
  2. ZOPICLONE [Concomitant]
     Active Substance: ZOPICLONE
     Indication: Intentional self-injury
     Dosage: 1 DOSAGE FORM, QD
     Route: 065
     Dates: start: 20230120, end: 20230218

REACTIONS (3)
  - Suicidal ideation [Recovered/Resolved]
  - Discomfort [Recovered/Resolved]
  - Sedation [Recovered/Resolved]
